FAERS Safety Report 13195951 (Version 2)
Quarter: 2017Q2

REPORT INFORMATION
  Report Type: Spontaneous
  Country: US (occurrence: US)
  Receive Date: 20170208
  Receipt Date: 20170427
  Transmission Date: 20170830
  Serious: Yes (Life-Threatening, Other)
  Sender: FDA-Public Use
  Company Number: US-SUN PHARMACEUTICAL INDUSTRIES LTD-2017US-132569

PATIENT
  Age: 15 Year
  Sex: Female

DRUGS (6)
  1. FLUOXETINE [Suspect]
     Active Substance: FLUOXETINE HYDROCHLORIDE
     Indication: AFFECTIVE DISORDER
     Dosage: INCREASED DOSE
     Route: 065
  2. FLUOXETINE [Suspect]
     Active Substance: FLUOXETINE HYDROCHLORIDE
     Indication: DISTURBANCE IN ATTENTION
  3. METHYLPHENIDATE. [Suspect]
     Active Substance: METHYLPHENIDATE
     Indication: AFFECTIVE DISORDER
     Dosage: UNK
     Route: 065
  4. FLUOXETINE [Suspect]
     Active Substance: FLUOXETINE HYDROCHLORIDE
     Indication: DISTURBANCE IN ATTENTION
  5. METHYLPHENIDATE. [Suspect]
     Active Substance: METHYLPHENIDATE
     Indication: DISTURBANCE IN ATTENTION
     Dosage: INCREASED DOSE
     Route: 065
  6. FLUOXETINE [Suspect]
     Active Substance: FLUOXETINE HYDROCHLORIDE
     Indication: AFFECTIVE DISORDER
     Dosage: UNK
     Route: 065

REACTIONS (1)
  - Serotonin syndrome [Recovered/Resolved]
